FAERS Safety Report 16252841 (Version 1)
Quarter: 2019Q2

REPORT INFORMATION
  Report Type: Spontaneous
  Country: BG (occurrence: BG)
  Receive Date: 20190429
  Receipt Date: 20190429
  Transmission Date: 20190711
  Serious: Yes (Death, Other)
  Sender: FDA-Public Use
  Company Number: BG-009507513-1904BGR010618

PATIENT
  Age: 57 Year
  Sex: Male

DRUGS (6)
  1. URBASON [Suspect]
     Active Substance: METHYLPREDNISOLONE
     Dosage: UNK
     Dates: start: 20190218
  2. ESSENTIALE [Concomitant]
     Dosage: UNK
     Dates: start: 20190210
  3. GLUTATHIONE [Concomitant]
     Active Substance: GLUTATHIONE
     Dosage: UNK
     Dates: start: 20190210
  4. URSOFALK [Concomitant]
     Active Substance: URSODIOL
     Dosage: UNK
     Dates: start: 20190210
  5. KEYTRUDA [Suspect]
     Active Substance: PEMBROLIZUMAB
     Indication: NON-SMALL CELL LUNG CANCER METASTATIC
     Dosage: 200 MILLIGRAM
     Dates: start: 201708
  6. TRANSMETIL [Concomitant]
     Active Substance: ADEMETIONINE
     Dosage: UNK
     Dates: start: 20190210

REACTIONS (10)
  - Hepatitis B reactivation [Unknown]
  - Death [Fatal]
  - Therapy partial responder [Unknown]
  - Immune-mediated hepatitis [Unknown]
  - Jaundice [Unknown]
  - Asthenia [Unknown]
  - Hepatic pain [Unknown]
  - Tachypnoea [Unknown]
  - Cholestasis [Unknown]
  - Drug ineffective [Unknown]

NARRATIVE: CASE EVENT DATE: 201801
